FAERS Safety Report 11836221 (Version 1)
Quarter: 2015Q4

REPORT INFORMATION
  Report Type: Spontaneous
  Country: US (occurrence: None)
  Receive Date: 20151214
  Receipt Date: 20151214
  Transmission Date: 20160305
  Serious: No
  Sender: FDA-Public Use
  Company Number: None

PATIENT

DRUGS (1)
  1. CORTIBALM 1% M+L SOLUTIONS, LLC [Suspect]
     Active Substance: HYDROCORTISONE

REACTIONS (3)
  - Product identification number issue [None]
  - Product label counterfeit [None]
  - Product counterfeit [None]

NARRATIVE: CASE EVENT DATE: 20151212
